FAERS Safety Report 5379294-4 (Version None)
Quarter: 2007Q3

REPORT INFORMATION
  Report Type: 
  Country: None (occurrence: None)
  Receive Date: 20070705
  Receipt Date: 20070626
  Transmission Date: 20080115
  Serious: Yes (Other)
  Sender: FDA-Public Use
  Company Number: US-PFIZER INC-2007052755

PATIENT
  Sex: Female
  Weight: 79.545 kg

DRUGS (5)
  1. LYRICA [Suspect]
     Indication: HERPES ZOSTER
  2. OXYCODONE HCL [Concomitant]
  3. ATIVAN [Concomitant]
  4. VALTREX [Concomitant]
  5. ZYRTEC [Concomitant]

REACTIONS (4)
  - EYE SWELLING [None]
  - HYPERSENSITIVITY [None]
  - PRURITUS [None]
  - VISUAL DISTURBANCE [None]
